FAERS Safety Report 14641382 (Version 1)
Quarter: 2018Q1

REPORT INFORMATION
  Report Type: Report from Study
  Country: BR (occurrence: BR)
  Receive Date: 20180315
  Receipt Date: 20180315
  Transmission Date: 20180509
  Serious: Yes (Death, Hospitalization)
  Sender: FDA-Public Use
  Company Number: BR-ACTELION-A-CH2018-169116

PATIENT
  Age: 20 Year
  Sex: Male

DRUGS (1)
  1. ZAVESCA [Suspect]
     Active Substance: MIGLUSTAT
     Indication: NIEMANN-PICK DISEASE
     Dosage: UNK
     Route: 048
     Dates: start: 2010, end: 201702

REACTIONS (2)
  - Pneumonia [Fatal]
  - Pyrexia [Fatal]

NARRATIVE: CASE EVENT DATE: 2017
